FAERS Safety Report 7107823-9 (Version None)
Quarter: 2010Q4

REPORT INFORMATION
  Report Type: 
  Country: None (occurrence: None)
  Receive Date: 20101117
  Receipt Date: 20101102
  Transmission Date: 20110411
  Serious: Yes (Hospitalization)
  Sender: FDA-Public Use
  Company Number: US-BAYER-201033631NA

PATIENT
  Age: 39 Year
  Sex: Female
  Weight: 68 kg

DRUGS (6)
  1. YAZ [Suspect]
     Indication: PRODUCT USED FOR UNKNOWN INDICATION
     Route: 048
     Dates: start: 20061001, end: 20090101
  2. YAZ [Suspect]
     Route: 048
     Dates: start: 20061001, end: 20090101
  3. YASMIN [Suspect]
     Indication: PRODUCT USED FOR UNKNOWN INDICATION
     Dates: start: 20061001, end: 20090101
  4. PRILOSEC [Concomitant]
  5. MOTRIN [Concomitant]
  6. ADVIL [Concomitant]

REACTIONS (4)
  - ABDOMINAL PAIN UPPER [None]
  - CHOLECYSTITIS CHRONIC [None]
  - CHOLELITHIASIS [None]
  - DYSPEPSIA [None]
